FAERS Safety Report 17836620 (Version 1)
Quarter: 2020Q2

REPORT INFORMATION
  Report Type: Other
  Country: None (occurrence: US)
  Receive Date: 20200529
  Receipt Date: 20200529
  Transmission Date: 20200714
  Serious: Yes (Other)
  Sender: FDA-Public Use
  Company Number: US-STANDARD HOMEOPATHIC COMPANY-2084301

PATIENT
  Age: 82 Year
  Sex: Female

DRUGS (3)
  1. KALI PHOX 30X [Suspect]
     Active Substance: HOMEOPATHICS
     Indication: STRESS
     Route: 048
     Dates: start: 20200514, end: 20200514
  2. KALI PHOX 30X [Suspect]
     Active Substance: HOMEOPATHICS
     Indication: TENSION
     Route: 048
     Dates: start: 20200514, end: 20200514
  3. KALI PHOX 30X [Suspect]
     Active Substance: HOMEOPATHICS
     Indication: HEADACHE
     Route: 048
     Dates: start: 20200514, end: 20200514

REACTIONS (1)
  - Hypertension [Unknown]

NARRATIVE: CASE EVENT DATE: 20200514
